FAERS Safety Report 21213171 (Version 1)
Quarter: 2022Q3

REPORT INFORMATION
  Report Type: Spontaneous
  Country: US (occurrence: None)
  Receive Date: 20220815
  Receipt Date: 20220815
  Transmission Date: 20221027
  Serious: Yes (Other)
  Sender: FDA-Public Use
  Company Number: None

PATIENT
  Age: 69 Year
  Sex: Female
  Weight: 78.02 kg

DRUGS (2)
  1. XEMBIFY [Suspect]
     Active Substance: HUMAN IMMUNOGLOBULIN G
  2. Xembify 20% [Concomitant]
     Dates: start: 20220801

REACTIONS (5)
  - Swollen tongue [None]
  - Tongue discomfort [None]
  - Swelling face [None]
  - Eye swelling [None]
  - Injection related reaction [None]

NARRATIVE: CASE EVENT DATE: 20220801
